FAERS Safety Report 23428796 (Version 13)
Quarter: 2025Q1

REPORT INFORMATION
  Report Type: Spontaneous
  Country: IN (occurrence: IN)
  Receive Date: 20240122
  Receipt Date: 20250324
  Transmission Date: 20250409
  Serious: Yes (Hospitalization, Other)
  Sender: PFIZER
  Company Number: IN-PFIZER INC-PV202400007881

PATIENT
  Age: 67 Year
  Sex: Male

DRUGS (8)
  1. LORLATINIB [Suspect]
     Active Substance: LORLATINIB
     Indication: Lung neoplasm malignant
     Dosage: DAILY ONCE
     Route: 048
     Dates: start: 20240109, end: 2024
  2. LORLATINIB [Suspect]
     Active Substance: LORLATINIB
     Route: 048
     Dates: start: 202401
  3. PAN [Concomitant]
  4. CILNIDIPINE [Concomitant]
     Active Substance: CILNIDIPINE
  5. TORGLIP R [Concomitant]
  6. EUREPA V [Concomitant]
  7. SILODAL [Concomitant]
  8. ALZOLAM [Concomitant]

REACTIONS (44)
  - Spinal disorder [Unknown]
  - Dysstasia [Unknown]
  - Fall [Unknown]
  - Skin injury [Unknown]
  - Asthenia [Unknown]
  - Pain [Recovering/Resolving]
  - Eye disorder [Unknown]
  - Decreased appetite [Unknown]
  - Catheter placement [Unknown]
  - Muscular weakness [Unknown]
  - Gait inability [Unknown]
  - Lung neoplasm malignant [Unknown]
  - Malignant neoplasm progression [Unknown]
  - Metastases to central nervous system [Unknown]
  - Stress [Unknown]
  - Nausea [Unknown]
  - Vomiting [Unknown]
  - Constipation [Unknown]
  - Weight fluctuation [Unknown]
  - Fatigue [Unknown]
  - Abdominal distension [Unknown]
  - Headache [Unknown]
  - Hyperchlorhydria [Unknown]
  - Balance disorder [Unknown]
  - Coordination abnormal [Unknown]
  - Blood triglycerides increased [Unknown]
  - Fear [Unknown]
  - Anxiety [Unknown]
  - Depression [Unknown]
  - Bradykinesia [Unknown]
  - Skin odour abnormal [Unknown]
  - Insomnia [Unknown]
  - Amnesia [Recovering/Resolving]
  - Tension [Unknown]
  - Dyspnoea exertional [Unknown]
  - Speech disorder [Recovered/Resolved]
  - Sleep disorder [Unknown]
  - Parosmia [Recovering/Resolving]
  - Abnormal behaviour [Unknown]
  - Flatulence [Unknown]
  - Dyspepsia [Unknown]
  - Mutism [Unknown]
  - Cognitive disorder [Recovering/Resolving]
  - Malaise [Unknown]

NARRATIVE: CASE EVENT DATE: 20240101
